FAERS Safety Report 6581824-1 (Version None)
Quarter: 2010Q1

REPORT INFORMATION
  Report Type: 
  Country: None (occurrence: None)
  Receive Date: 20100211
  Receipt Date: 20100211
  Transmission Date: 20100710
  Serious: Yes (Other)
  Sender: FDA-Public Use
  Company Number: None

PATIENT
  Sex: Male
  Weight: 73.1 kg

DRUGS (2)
  1. TOPIRAMATE [Suspect]
     Indication: EPILEPSY
     Dosage: 200MG BID PO
     Route: 048
     Dates: start: 20100201
  2. LEVETIRACETAM [Suspect]
     Dosage: 1000MG 1 BID P.O.
     Route: 048

REACTIONS (3)
  - CONVULSION [None]
  - EYE PAIN [None]
  - FALL [None]
